FAERS Safety Report 18149166 (Version 2)
Quarter: 2020Q3

REPORT INFORMATION
  Report Type: Spontaneous
  Country: AU (occurrence: AU)
  Receive Date: 20200813
  Receipt Date: 20200903
  Transmission Date: 20201103
  Serious: Yes (Other)
  Sender: FDA-Public Use
  Company Number: AU-ALEXION-A202011441

PATIENT
  Age: 64 Year
  Sex: Female

DRUGS (1)
  1. SOLIRIS [Suspect]
     Active Substance: ECULIZUMAB
     Indication: ATYPICAL HAEMOLYTIC URAEMIC SYNDROME
     Dosage: UNK
     Route: 065
     Dates: start: 20190709, end: 202006

REACTIONS (5)
  - Pulmonary embolism [Unknown]
  - Melanoma recurrent [Unknown]
  - Thrombotic microangiopathy [Unknown]
  - Kidney fibrosis [Unknown]
  - Glomerulosclerosis [Unknown]

NARRATIVE: CASE EVENT DATE: 20190724
